FAERS Safety Report 4489969-7 (Version None)
Quarter: 2004Q4

REPORT INFORMATION
  Report Type: 
  Country: None (occurrence: None)
  Receive Date: 20041101
  Receipt Date: 20041023
  Transmission Date: 20050328
  Serious: Yes (Other)
  Sender: FDA-Public Use
  Company Number: GB-GLAXOSMITHKLINE-B0349168A

PATIENT
  Age: 40 Year
  Sex: Male

DRUGS (1)
  1. SEROXAT [Suspect]
     Indication: CHRONIC FATIGUE SYNDROME
     Dosage: 30MG PER DAY
     Route: 048
     Dates: start: 20030226, end: 20040506

REACTIONS (3)
  - ABNORMAL DREAMS [None]
  - AGGRESSION [None]
  - NIGHTMARE [None]
